FAERS Safety Report 5840796-5 (Version None)
Quarter: 2008Q3

REPORT INFORMATION
  Report Type: 
  Country: None (occurrence: None)
  Receive Date: 20080811
  Receipt Date: 20080730
  Transmission Date: 20090109
  Serious: Yes (Life-Threatening, Hospitalization, Other)
  Sender: FDA-Public Use
  Company Number: JP-PFIZER INC-2008029006

PATIENT
  Sex: Female

DRUGS (7)
  1. GENOTROPIN [Suspect]
     Indication: POSTPARTUM HYPOPITUITARISM
     Dosage: DAILY DOSE:.4MG-FREQ:FREQUENCY: QD
     Route: 058
     Dates: start: 20061114, end: 20080330
  2. GENOTROPIN [Suspect]
  3. HYDROCORTISONE [Concomitant]
     Route: 048
  4. LEVOTHYROXINE SODIUM [Concomitant]
     Route: 048
  5. DILAZEP [Concomitant]
     Route: 048
     Dates: start: 19880329, end: 20080330
  6. DOXAZOSIN MESYLATE [Concomitant]
     Route: 048
     Dates: start: 19981113, end: 20080330
  7. BENIDIPINE HYDROCHLORIDE [Concomitant]
     Route: 048
     Dates: start: 19981113, end: 20080330

REACTIONS (1)
  - ACUTE MYOCARDIAL INFARCTION [None]
